FAERS Safety Report 10922903 (Version 7)
Quarter: 2015Q3

REPORT INFORMATION
  Report Type: Report from Study
  Country: RU (occurrence: RU)
  Receive Date: 20150317
  Receipt Date: 20150805
  Transmission Date: 20151125
  Serious: Yes (Life-Threatening, Hospitalization)
  Sender: FDA-Public Use
  Company Number: RU-MERCK-1503RUS007404

PATIENT
  Age: 56 Year
  Sex: Male

DRUGS (7)
  1. PEGINTERFERON ALFA-2B [Suspect]
     Active Substance: PEGINTERFERON ALFA-2B
     Dosage: 6 MICROGRAM PER KILOGRAM, QW, LOCATION: RIGHT ARM(05-MAR-2015 AT A DOSE OF 480 MKG.)
     Route: 058
     Dates: start: 20150325
  2. VALZ H [Concomitant]
     Indication: HYPERTENSION
     Dosage: 1 TABLET EVERY DAY
     Route: 048
     Dates: start: 201411
  3. ACETAMINOPHEN. [Concomitant]
     Active Substance: ACETAMINOPHEN
     Indication: PROPHYLAXIS
     Dosage: 500 MG, PRN
     Route: 048
     Dates: start: 20150206
  4. XARELTO [Concomitant]
     Active Substance: RIVAROXABAN
     Indication: THROMBOSIS
  5. DETRALEX [Concomitant]
     Active Substance: DIOSMIN\HESPERIDIN
     Indication: PROPHYLAXIS
  6. PEGINTERFERON ALFA-2B [Suspect]
     Active Substance: PEGINTERFERON ALFA-2B
     Indication: MALIGNANT MELANOMA
     Dosage: 6 MICROGRAM PER KILOGRAM, QW, LOCATION: RIGHT ARM(05-MAR-2015 AT A DOSE OF 480 MKG.)
     Route: 058
     Dates: start: 20150206, end: 20150305
  7. ESCORDI COR [Concomitant]
     Indication: HYPERTENSION
     Dosage: 2.5 MG, EVERYDAY
     Route: 048
     Dates: start: 201411

REACTIONS (2)
  - Thrombocytopenia [Recovered/Resolved]
  - Haemorrhage [Recovered/Resolved]

NARRATIVE: CASE EVENT DATE: 20150306
